FAERS Safety Report 20533140 (Version 2)
Quarter: 2022Q1

REPORT INFORMATION
  Report Type: Spontaneous
  Country: SE (occurrence: SE)
  Receive Date: 20220301
  Receipt Date: 20220314
  Transmission Date: 20220423
  Serious: Yes (Hospitalization, Other)
  Sender: FDA-Public Use
  Company Number: None

PATIENT
  Age: 68 Year
  Sex: Male

DRUGS (4)
  1. JARDIANCE [Suspect]
     Active Substance: EMPAGLIFLOZIN
     Indication: Product used for unknown indication
     Dates: end: 20220204
  2. Allopurinol Sandoz 100 mg Tablett [Concomitant]
     Indication: Product used for unknown indication
  3. Irbesartan Accord 150 mg Filmdragerad tablett [Concomitant]
     Indication: Product used for unknown indication
  4. Lixiana 30 mg Filmdragerad tablett [Concomitant]
     Indication: Product used for unknown indication

REACTIONS (3)
  - Acute kidney injury [Recovering/Resolving]
  - Metabolic acidosis [Recovering/Resolving]
  - Hyperkalaemia [Recovering/Resolving]

NARRATIVE: CASE EVENT DATE: 20220202
